FAERS Safety Report 6389169-X (Version None)
Quarter: 2009Q4

REPORT INFORMATION
  Report Type: 
  Country: None (occurrence: None)
  Receive Date: 20091006
  Receipt Date: 20071219
  Transmission Date: 20100525
  Serious: Yes (Other)
  Sender: FDA-Public Use
  Company Number: US-ASTRAZENECA-2007UW10995

PATIENT
  Age: 17917 Day
  Sex: Male
  Weight: 83.9 kg

DRUGS (17)
  1. SEROQUEL [Suspect]
     Indication: SCHIZOPHRENIA
     Route: 048
     Dates: start: 20011001, end: 20061001
  2. SEROQUEL [Suspect]
     Indication: DEPRESSION
     Route: 048
     Dates: start: 20011001, end: 20061001
  3. SEROQUEL [Suspect]
     Route: 048
     Dates: start: 20040212
  4. SEROQUEL [Suspect]
     Route: 048
     Dates: start: 20040212
  5. SERTRALINE HCL [Concomitant]
  6. THORAZINE [Concomitant]
  7. ZOLOFT [Concomitant]
     Indication: DEPRESSION
     Dosage: 100 MG TO 200 MG
     Route: 048
  8. DIAZEPAM [Concomitant]
  9. MIRTAZAPINE [Concomitant]
     Dates: start: 20040212
  10. SPIRONOLACTONE [Concomitant]
     Dates: start: 20040212
  11. ATENOLOL [Concomitant]
     Dosage: 25 MG TO 50 MG
     Route: 048
     Dates: start: 20040212
  12. PROTONIX [Concomitant]
     Dates: start: 20040212
  13. METOCLOPRAMIDE [Concomitant]
     Dates: start: 20040212
  14. GABAPENTIN [Concomitant]
     Dates: start: 20070820
  15. LOVASTATIN [Concomitant]
     Route: 048
     Dates: start: 20070820
  16. HYDROCHLOROTHIAZIDE [Concomitant]
     Dates: start: 20070820
  17. MEPERIDINE HCL [Concomitant]
     Indication: PAIN
     Dates: start: 20070820

REACTIONS (3)
  - MULTIPLE INJURIES [None]
  - NEUROPATHY PERIPHERAL [None]
  - TYPE 2 DIABETES MELLITUS [None]
